FAERS Safety Report 5198419-7 (Version None)
Quarter: 2006Q4

REPORT INFORMATION
  Report Type: 
  Country: None (occurrence: None)
  Receive Date: 20061229
  Receipt Date: 20061229
  Transmission Date: 20070319
  Serious: Yes (Life-Threatening)
  Sender: FDA-Public Use
  Company Number: None

PATIENT
  Sex: Female
  Weight: 58.514 kg

DRUGS (1)
  1. PTK787 NOVARTIS [Suspect]
     Indication: OVARIAN CANCER
     Dosage: 750MG QD X 28 DAYS PO
     Route: 048
     Dates: start: 20060928, end: 20061112

REACTIONS (6)
  - BETA HAEMOLYTIC STREPTOCOCCAL INFECTION [None]
  - DEEP VEIN THROMBOSIS [None]
  - DISEASE PROGRESSION [None]
  - FATIGUE [None]
  - JUGULAR VEIN THROMBOSIS [None]
  - THROMBOPHLEBITIS SEPTIC [None]
